FAERS Safety Report 20421916 (Version 1)
Quarter: 2022Q1

REPORT INFORMATION
  Report Type: Spontaneous
  Country: PT (occurrence: PT)
  Receive Date: 20220203
  Receipt Date: 20220203
  Transmission Date: 20220423
  Serious: Yes (Other)
  Sender: FDA-Public Use
  Company Number: PT-LEO Pharma-340873

PATIENT
  Age: 55 Year
  Sex: Male

DRUGS (1)
  1. BRODALUMAB [Suspect]
     Active Substance: BRODALUMAB
     Indication: Psoriasis
     Dosage: 210MG AT WEEKS 0,1,2 AND EVERY OTHER WEEK
     Route: 065

REACTIONS (1)
  - Psoriatic arthropathy [Unknown]
